FAERS Safety Report 11934682 (Version 1)
Quarter: 2016Q1

REPORT INFORMATION
  Report Type: Spontaneous
  Country: US (occurrence: None)
  Receive Date: 20160120
  Receipt Date: 20160120
  Transmission Date: 20160526
  Serious: Yes (Life-Threatening)
  Sender: FDA-Public Use
  Company Number: None

PATIENT
  Age: 62 Year
  Sex: Male
  Weight: 81.65 kg

DRUGS (7)
  1. METOPROLOL. [Concomitant]
     Active Substance: METOPROLOL
  2. LISINOPRIL. [Concomitant]
     Active Substance: LISINOPRIL
  3. NITROSTAT [Concomitant]
     Active Substance: NITROGLYCERIN
  4. BRILINTA [Suspect]
     Active Substance: TICAGRELOR
     Indication: PROPHYLAXIS
     Dosage: 2 PILLS DAILY TWICE DAILY TAKEN BY MOUTH
     Route: 048
     Dates: start: 20151230, end: 20160117
  5. ASPIRIN. [Concomitant]
     Active Substance: ASPIRIN
  6. BRILINTA [Suspect]
     Active Substance: TICAGRELOR
     Indication: VASCULAR STENT THROMBOSIS
     Dosage: 2 PILLS DAILY TWICE DAILY TAKEN BY MOUTH
     Route: 048
     Dates: start: 20151230, end: 20160117
  7. ATORVASTATIN [Concomitant]
     Active Substance: ATORVASTATIN

REACTIONS (1)
  - Haemorrhage [None]

NARRATIVE: CASE EVENT DATE: 20160117
